FAERS Safety Report 8207870-X (Version None)
Quarter: 2012Q1

REPORT INFORMATION
  Report Type: 
  Country: None (occurrence: None)
  Receive Date: 20120314
  Receipt Date: 20120301
  Transmission Date: 20120608
  Serious: Yes (Disabling, Other)
  Sender: FDA-Public Use
  Company Number: DE-SANOFI-AVENTIS-200512847DE

PATIENT
  Age: 70 Year
  Sex: Male
  Weight: 79 kg

DRUGS (5)
  1. DOCETAXEL [Suspect]
     Indication: NEOPLASM PROSTATE
     Route: 042
     Dates: start: 20051117, end: 20051117
  2. FERROUS SULFATE TAB [Concomitant]
  3. ENALAPRIL MALEATE [Concomitant]
     Indication: HYPERTENSION
  4. ESOMEPRAZOLE SODIUM [Concomitant]
     Indication: GASTRITIS
  5. OLMESARTAN MEDOXOMIL [Concomitant]
     Indication: HYPERTENSION

REACTIONS (3)
  - RESTLESS LEGS SYNDROME [None]
  - PAIN [None]
  - DYSKINESIA [None]
